FAERS Safety Report 8906513 (Version 2)
Quarter: 2012Q4

REPORT INFORMATION
  Report Type: Spontaneous
  Country: JP (occurrence: None)
  Receive Date: 20121108
  Receipt Date: 20121115
  Transmission Date: 20130627
  Serious: Yes (Hospitalization)
  Sender: FDA-Public Use
  Company Number: TPA2012A08831

PATIENT
  Age: 70 Year
  Sex: Female

DRUGS (18)
  1. FEBURIC [Suspect]
     Indication: HYPERURICAEMIA
     Route: 048
     Dates: start: 20120329, end: 20120516
  2. FEBURIC [Suspect]
     Indication: HYPERURICAEMIA
     Route: 048
     Dates: start: 20120517, end: 20120613
  3. FEBURIC [Suspect]
     Indication: HYPERURICAEMIA
     Route: 048
     Dates: start: 20120614, end: 20120920
  4. ADALAT [Concomitant]
  5. PARIET [Concomitant]
  6. MEXITIL (MEXILETINE HYDROCHLORIDE) [Concomitant]
  7. GASMOTIN (MOSAPRIDE CITRATE) [Concomitant]
  8. LASIX (FUROSEMIDE) [Concomitant]
  9. ARGAMATE (CALCIUM POLYSTYRENE SULFONATE) [Concomitant]
  10. THYRADIN S (LEVOTHYROXINE SODIUM) [Concomitant]
  11. MICARDIS (TELMISARTAN) [Concomitant]
  12. CARDENALIN (DOXAZOSIN MESILATE) [Concomitant]
  13. MYONAL (EPIRIZOLE HYDROCHLORIDE) [Concomitant]
  14. ATELEC (CILNIDIPINE) [Concomitant]
  15. ANPLAG (SARPOGRELATE HYDROCHLORIDE) [Concomitant]
  16. ANPLAG (SARPOGRELATE HYDROCHLORIDE) [Concomitant]
  17. HUMALOG (INSULIN LISPRO) [Concomitant]
  18. LANTUS (INSULIN GLARGINE) [Concomitant]

REACTIONS (6)
  - Liver disorder [None]
  - Aspartate aminotransferase increased [None]
  - Alanine aminotransferase increased [None]
  - Gamma-glutamyltransferase increased [None]
  - Blood alkaline phosphatase increased [None]
  - Nausea [None]
